FAERS Safety Report 16308757 (Version 1)
Quarter: 2019Q2

REPORT INFORMATION
  Report Type: Spontaneous
  Country: US (occurrence: US)
  Receive Date: 20190514
  Receipt Date: 20190514
  Transmission Date: 20190711
  Serious: No
  Sender: FDA-Public Use
  Company Number: US-PFIZER INC-2019199321

PATIENT
  Sex: Female
  Weight: 90.72 kg

DRUGS (4)
  1. CYCLOBENZAPRINE. [Concomitant]
     Active Substance: CYCLOBENZAPRINE
     Indication: MUSCLE RELAXANT THERAPY
     Dosage: UNK
     Dates: start: 2012
  2. GABAPENTIN. [Suspect]
     Active Substance: GABAPENTIN
     Indication: SEIZURE
     Dosage: 2700 MG, DAILY (2 IN THE MORNING, 3 IN THE AFTERNOON, AND 4 AT NIGHT)
     Route: 048
     Dates: start: 2012
  3. KEPPRA [Concomitant]
     Active Substance: LEVETIRACETAM
     Indication: SEIZURE
     Dosage: 250 MG, 2X/DAY (TAKES ONE OF EACH TABLET TWICE A DAY)
     Route: 048
     Dates: start: 2012
  4. KEPPRA [Concomitant]
     Active Substance: LEVETIRACETAM
     Dosage: 1000 MG, 2X/DAY(TAKES ONE OF EACH TABLET TWICE A DAY)
     Route: 048
     Dates: start: 2012

REACTIONS (2)
  - Therapeutic response unexpected [Unknown]
  - Pre-existing condition improved [Unknown]
